FAERS Safety Report 16781208 (Version 3)
Quarter: 2019Q4

REPORT INFORMATION
  Report Type: Spontaneous
  Country: US (occurrence: US)
  Receive Date: 20190906
  Receipt Date: 20191202
  Transmission Date: 20200122
  Serious: Yes (Death, Hospitalization, Other)
  Sender: FDA-Public Use
  Company Number: US-PFIZER INC-2019383131

PATIENT
  Age: 84 Year
  Sex: Male

DRUGS (3)
  1. RETACRIT [Suspect]
     Active Substance: EPOETIN ALFA-EPBX
     Dosage: UNK ( 20,000  WEEKLY)
     Route: 058
  2. RETACRIT [Suspect]
     Active Substance: EPOETIN ALFA-EPBX
     Indication: RENAL FAILURE
     Dosage: 10000 IU/ML
     Dates: end: 20190723
  3. JAKAFI [Concomitant]
     Active Substance: RUXOLITINIB
     Indication: MYELODYSPLASTIC SYNDROME
     Dosage: UNK, (EVERY 4TH DAY)
     Dates: start: 201402, end: 20190725

REACTIONS (5)
  - Neoplasm progression [Fatal]
  - Atrial fibrillation [Unknown]
  - Peripheral vascular disorder [Unknown]
  - Cardiac failure congestive [Unknown]
  - Dyspnoea [Unknown]
